FAERS Safety Report 10461245 (Version 10)
Quarter: 2015Q2

REPORT INFORMATION
  Report Type: Report from Study
  Country: CA (occurrence: CA)
  Receive Date: 20140918
  Receipt Date: 20150422
  Transmission Date: 20150821
  Serious: Yes (Hospitalization, Other)
  Sender: FDA-Public Use
  Company Number: CA-JNJFOC-20140907238

PATIENT
  Age: 68 Year
  Sex: Male

DRUGS (3)
  1. ZYTIGA [Suspect]
     Active Substance: ABIRATERONE ACETATE
     Indication: PROSTATE CANCER METASTATIC
     Route: 048
     Dates: start: 20140826
  2. ZYTIGA [Suspect]
     Active Substance: ABIRATERONE ACETATE
     Indication: PROSTATE CANCER METASTATIC
     Route: 048
  3. PREDNISONE. [Concomitant]
     Active Substance: PREDNISONE
     Indication: PROSTATE CANCER METASTATIC
     Route: 065

REACTIONS (24)
  - Neutropenia [Recovered/Resolved]
  - Dizziness [Not Recovered/Not Resolved]
  - Mean cell haemoglobin decreased [Not Recovered/Not Resolved]
  - Mean cell volume decreased [Not Recovered/Not Resolved]
  - Blood alkaline phosphatase increased [Not Recovered/Not Resolved]
  - Urinary retention [Unknown]
  - Prostatic specific antigen decreased [Recovered/Resolved]
  - Aspartate aminotransferase increased [Not Recovered/Not Resolved]
  - Lymphocyte count decreased [Not Recovered/Not Resolved]
  - Red cell distribution width increased [Recovering/Resolving]
  - Hypotension [Not Recovered/Not Resolved]
  - Prostatic specific antigen increased [Not Recovered/Not Resolved]
  - Anion gap decreased [Unknown]
  - White blood cell count decreased [Recovered/Resolved]
  - Renal failure [Unknown]
  - Haemoglobin decreased [Recovering/Resolving]
  - Hypertension [Not Recovered/Not Resolved]
  - Haematocrit decreased [Not Recovered/Not Resolved]
  - Aphasia [Not Recovered/Not Resolved]
  - Platelet count decreased [Recovering/Resolving]
  - Blood test abnormal [Unknown]
  - Blood glucose increased [Unknown]
  - Red blood cell count decreased [Recovering/Resolving]
  - Mean cell haemoglobin concentration decreased [Recovered/Resolved]

NARRATIVE: CASE EVENT DATE: 20140902
